FAERS Safety Report 8816653 (Version 1)
Quarter: 2012Q4

REPORT INFORMATION
  Report Type: Spontaneous
  Country: CH (occurrence: None)
  Receive Date: 20120928
  Receipt Date: 20120928
  Transmission Date: 20130627
  Serious: Yes (Hospitalization)
  Sender: FDA-Public Use
  Company Number: DSA_59785_2012

PATIENT
  Sex: Male

DRUGS (8)
  1. DILZEM [Suspect]
     Indication: ESSENTIAL HYPERTENSION
     Route: 048
     Dates: start: 20120803, end: 20120809
  2. DILZEM [Suspect]
     Indication: ESSENTIAL HYPERTENSION
     Route: 048
     Dates: start: 20120810, end: 20120810
  3. CITALOPRAM HYDROBROMIDE [Suspect]
     Indication: PRODUCT USED FOR UNKNOWN INDICATION
     Route: 048
  4. BISOPROLOL FUMARATE [Suspect]
     Indication: ESSENTIAL HYPERTENSION
     Route: 048
     Dates: start: 20120803
  5. ANTRAMUPS [Suspect]
     Indication: GASTROOESOPHAGEAL REFLUX DISEASE
     Route: 048
  6. XARELTO [Concomitant]
  7. SIMVASTATIN [Concomitant]
  8. CO-DIOVAN [Concomitant]

REACTIONS (2)
  - Syncope [None]
  - Atrial fibrillation [None]
